FAERS Safety Report 11726630 (Version 4)
Quarter: 2016Q2

REPORT INFORMATION
  Report Type: Spontaneous
  Country: BR (occurrence: BR)
  Receive Date: 20151112
  Receipt Date: 20160605
  Transmission Date: 20160815
  Serious: Yes (Hospitalization, Other)
  Sender: FDA-Public Use
  Company Number: BR-ROCHE-1655150

PATIENT
  Age: 43 Year
  Sex: Female
  Weight: 39 kg

DRUGS (11)
  1. RIVOTRIL [Suspect]
     Active Substance: CLONAZEPAM
     Indication: PANIC DISORDER
  2. RIVOTRIL [Suspect]
     Active Substance: CLONAZEPAM
     Indication: FEELING OF RELAXATION
  3. RIVOTRIL [Suspect]
     Active Substance: CLONAZEPAM
     Indication: SEIZURE
     Dosage: AS REQUIRED
     Route: 065
     Dates: start: 201404, end: 201509
  4. RIVOTRIL [Suspect]
     Active Substance: CLONAZEPAM
     Indication: FEELING OF RELAXATION
  5. RIVOTRIL [Suspect]
     Active Substance: CLONAZEPAM
     Indication: PANIC DISORDER
     Dosage: 2.5 MG/ML
     Route: 048
  6. RIVOTRIL [Suspect]
     Active Substance: CLONAZEPAM
     Indication: SLEEP DISORDER
  7. NEXIUM [Concomitant]
     Active Substance: ESOMEPRAZOLE MAGNESIUM
     Indication: GASTRIC DISORDER
  8. RIVOTRIL [Suspect]
     Active Substance: CLONAZEPAM
     Indication: SEIZURE
     Dosage: FROM 15 TO 17 DROPS AT NIGHT
     Route: 048
     Dates: start: 201411
  9. GARDENAL [Concomitant]
     Active Substance: PHENOBARBITAL
     Dosage: ONE TABLET
     Route: 065
  10. RIVOTRIL [Suspect]
     Active Substance: CLONAZEPAM
     Indication: SLEEP DISORDER
  11. GARDENAL [Concomitant]
     Active Substance: PHENOBARBITAL
     Indication: SEIZURE
     Dosage: ONE TABLET
     Route: 065

REACTIONS (10)
  - Oesophageal disorder [Unknown]
  - Product dropper issue [Unknown]
  - Wrong technique in product usage process [Unknown]
  - Weight decreased [Unknown]
  - Dizziness [Unknown]
  - Balance disorder [Unknown]
  - Oesophageal rupture [Unknown]
  - Drug effect decreased [Unknown]
  - Loss of consciousness [Recovering/Resolving]
  - Dysphagia [Unknown]

NARRATIVE: CASE EVENT DATE: 201411
